FAERS Safety Report 7774136-1 (Version None)
Quarter: 2011Q3

REPORT INFORMATION
  Report Type: 
  Country: None (occurrence: None)
  Receive Date: 20110923
  Receipt Date: 20110913
  Transmission Date: 20111222
  Serious: Yes (Hospitalization)
  Sender: FDA-Public Use
  Company Number: US-JNJFOC-20110906933

PATIENT
  Sex: Male
  Weight: 39.8 kg

DRUGS (5)
  1. REMICADE [Suspect]
     Route: 042
     Dates: start: 20071101, end: 20080730
  2. MESALAMINE [Concomitant]
     Indication: CROHN'S DISEASE
     Route: 048
  3. ANTIBIOTICS [Concomitant]
     Indication: INFLAMMATORY BOWEL DISEASE
     Route: 048
  4. REMICADE [Suspect]
     Route: 042
     Dates: start: 20110829
  5. REMICADE [Suspect]
     Indication: CROHN'S DISEASE
     Route: 042
     Dates: start: 20110104

REACTIONS (1)
  - CROHN'S DISEASE [None]
